FAERS Safety Report 15713781 (Version 2)
Quarter: 2019Q1

REPORT INFORMATION
  Report Type: Spontaneous
  Country: US (occurrence: US)
  Receive Date: 20181212
  Receipt Date: 20190118
  Transmission Date: 20190417
  Serious: Yes (Other)
  Sender: FDA-Public Use
  Company Number: US-PRINSTON PHARMACEUTICAL INC.-2018PRN01687

PATIENT
  Age: 54 Year
  Sex: Female
  Weight: 71.66 kg

DRUGS (3)
  1. LEVETIRACETAM. [Suspect]
     Active Substance: LEVETIRACETAM
     Indication: EPILEPSY
     Dosage: 1000 MG, 1X/DAY IN THE MORNING
     Route: 048
     Dates: start: 201811, end: 201811
  2. LEVETIRACETAM. [Suspect]
     Active Substance: LEVETIRACETAM
     Indication: EPILEPSY
     Dosage: 1125 MG, 2X/DAY
     Route: 048
     Dates: start: 201810, end: 201811
  3. LEVETIRACETAM. [Suspect]
     Active Substance: LEVETIRACETAM
     Dosage: 1500 MG, 1X/DAY AT NIGHT
     Route: 048
     Dates: start: 201811, end: 201811

REACTIONS (11)
  - Stress [Recovered/Resolved]
  - Alanine aminotransferase increased [Unknown]
  - Idiopathic generalised epilepsy [Recovered/Resolved]
  - Feeling abnormal [Recovered/Resolved]
  - Tongue biting [Unknown]
  - Fear of death [Recovered/Resolved]
  - Product administration error [Recovered/Resolved]
  - Fatigue [Recovered/Resolved]
  - Pain [Unknown]
  - Drug ineffective [Recovered/Resolved]
  - Anxiety [Recovered/Resolved]

NARRATIVE: CASE EVENT DATE: 201810
